FAERS Safety Report 18813057 (Version 1)
Quarter: 2021Q1

REPORT INFORMATION
  Report Type: Report from Study
  Country: CA (occurrence: CA)
  Receive Date: 20210131
  Receipt Date: 20210131
  Transmission Date: 20210419
  Serious: Yes (Life-Threatening, Other)
  Sender: FDA-Public Use
  Company Number: NVSC2021CA021787

PATIENT
  Sex: Female

DRUGS (5)
  1. OCTREOTIDE. [Suspect]
     Active Substance: OCTREOTIDE
  2. LANREOTIDE [Concomitant]
     Active Substance: LANREOTIDE
     Indication: PRODUCT USED FOR UNKNOWN INDICATION
     Dosage: UNK
     Route: 065
     Dates: start: 20201226, end: 20201226
  3. OCTREOTIDE. [Suspect]
     Active Substance: OCTREOTIDE
     Indication: PRODUCT USED FOR UNKNOWN INDICATION
     Dosage: UNK
     Route: 065
     Dates: start: 20210126
  4. OCTREOTIDE. [Suspect]
     Active Substance: OCTREOTIDE
  5. EXTAVIA [Suspect]
     Active Substance: INTERFERON BETA-1B
     Indication: HYPERCALCAEMIA
     Dosage: UNK
     Route: 065
     Dates: start: 2018, end: 2018

REACTIONS (11)
  - Feeling abnormal [Unknown]
  - Brain injury [Unknown]
  - Drug ineffective [Unknown]
  - Breast cancer [Unknown]
  - Metastases to liver [Unknown]
  - Vomiting [Unknown]
  - Memory impairment [Unknown]
  - Illness [Unknown]
  - Pain [Unknown]
  - Hypercalcaemia [Unknown]
  - Pyrexia [Unknown]

NARRATIVE: CASE EVENT DATE: 2018
